FAERS Safety Report 5279268-8 (Version None)
Quarter: 2007Q1

REPORT INFORMATION
  Report Type: 
  Country: None (occurrence: None)
  Receive Date: 20070328
  Receipt Date: 20060720
  Transmission Date: 20070707
  Serious: No
  Sender: FDA-Public Use
  Company Number: US-AMGEN-KDL187058

PATIENT

DRUGS (1)
  1. NEULASTA [Suspect]
     Indication: CHEMOTHERAPY

REACTIONS (1)
  - INJECTION SITE PAIN [None]
